FAERS Safety Report 20042779 (Version 1)
Quarter: 2021Q4

REPORT INFORMATION
  Report Type: Spontaneous
  Country: US (occurrence: US)
  Receive Date: 20211108
  Receipt Date: 20211108
  Transmission Date: 20220303
  Serious: Yes (Other)
  Sender: FDA-Public Use
  Company Number: US-GLAXOSMITHKLINE-US2021GSK228306

PATIENT
  Sex: Female

DRUGS (12)
  1. RANITIDINE [Suspect]
     Active Substance: RANITIDINE
     Indication: Barrett^s oesophagus
     Dosage: UNK UNK, QD
     Route: 065
     Dates: start: 200001, end: 202010
  2. RANITIDINE [Suspect]
     Active Substance: RANITIDINE
     Indication: Colitis ulcerative
  3. ZANTAC [Suspect]
     Active Substance: RANITIDINE HYDROCHLORIDE
     Indication: Colitis ulcerative
     Dosage: UNK UNK, QD
     Route: 065
     Dates: start: 199001, end: 202010
  4. ZANTAC [Suspect]
     Active Substance: RANITIDINE HYDROCHLORIDE
     Indication: Barrett^s oesophagus
  5. ZANTAC [Suspect]
     Active Substance: RANITIDINE HYDROCHLORIDE
     Indication: Colitis ulcerative
     Dosage: UNK UNK, QD
     Route: 065
     Dates: start: 199001, end: 202010
  6. ZANTAC [Suspect]
     Active Substance: RANITIDINE HYDROCHLORIDE
     Indication: Barrett^s oesophagus
  7. RANITIDINE [Suspect]
     Active Substance: RANITIDINE
     Indication: Colitis ulcerative
     Dosage: UNK UNK, QD
     Route: 065
     Dates: start: 199001, end: 202010
  8. RANITIDINE [Suspect]
     Active Substance: RANITIDINE
     Indication: Barrett^s oesophagus
  9. RANITIDINE [Suspect]
     Active Substance: RANITIDINE
     Indication: Colitis ulcerative
     Dosage: UNK, QD
     Route: 065
     Dates: start: 200001, end: 202010
  10. RANITIDINE [Suspect]
     Active Substance: RANITIDINE
     Indication: Barrett^s oesophagus
  11. ZANTAC [Suspect]
     Active Substance: RANITIDINE HYDROCHLORIDE
     Indication: Barrett^s oesophagus
     Dosage: UNK UNK, QD
     Route: 065
     Dates: start: 199001, end: 202010
  12. ZANTAC [Suspect]
     Active Substance: RANITIDINE HYDROCHLORIDE
     Indication: Colitis ulcerative

REACTIONS (1)
  - Breast cancer [Unknown]
